FAERS Safety Report 11937732 (Version 1)
Quarter: 2016Q1

REPORT INFORMATION
  Report Type: Spontaneous
  Country: US (occurrence: None)
  Receive Date: 20160120
  Receipt Date: 20160120
  Transmission Date: 20160526
  Serious: No
  Sender: FDA-Public Use
  Company Number: None

PATIENT
  Age: 57 Year
  Sex: Male
  Weight: 76.66 kg

DRUGS (1)
  1. VANCOMYCIN 1GM MYLAN [Suspect]
     Active Substance: VANCOMYCIN
     Indication: OSTEOMYELITIS
     Route: 042
     Dates: start: 20160117, end: 20160117

REACTIONS (3)
  - Rash [None]
  - Pruritus [None]
  - Malaise [None]

NARRATIVE: CASE EVENT DATE: 20160117
